FAERS Safety Report 12799973 (Version 1)
Quarter: 2016Q3

REPORT INFORMATION
  Report Type: Spontaneous
  Country: IT (occurrence: IT)
  Receive Date: 20160930
  Receipt Date: 20160930
  Transmission Date: 20161109
  Serious: Yes (Hospitalization)
  Sender: FDA-Public Use
  Company Number: IT-SA-2016SA179462

PATIENT
  Age: 38 Year
  Sex: Female

DRUGS (7)
  1. ZOLPIDEM TARTRATE. [Suspect]
     Active Substance: ZOLPIDEM TARTRATE
     Route: 048
     Dates: start: 20160611, end: 20160611
  2. TRITTICO [Suspect]
     Active Substance: TRAZODONE HYDROCHLORIDE
     Dosage: TRITTICO (TRAZODONE HYDROCHLORIDE) 75MG PROLONGED RELEASE TABLET
     Route: 048
     Dates: start: 20160611, end: 20160611
  3. DEPAKIN CHRONO [Suspect]
     Active Substance: VALPROIC ACID
     Route: 048
     Dates: start: 20160611, end: 20160611
  4. SEROQUEL [Suspect]
     Active Substance: QUETIAPINE FUMARATE
     Dosage: SEROQUEL (QUETIAPINE FUMARATE) 100MG FILM COATED TABLET 5 DOSAGE UNIT TOTAL
     Route: 048
     Dates: start: 20160611, end: 20160611
  5. SEROQUEL [Suspect]
     Active Substance: QUETIAPINE FUMARATE
     Dosage: SEROQUEL (QUETIAPINE FUMARATE) 200MG PROLONGED RELEASE TABLET 1 DOSAGE UNIT TOTAL
     Route: 048
     Dates: start: 20160611, end: 20160611
  6. VATRAN [Suspect]
     Active Substance: DIAZEPAM
     Dosage: VATRAN (DIAZEPAM) 2MG TABLET 3 DOSAGE UNIT TOTAL
     Route: 048
     Dates: start: 20160611, end: 20160611
  7. FRISIUM [Suspect]
     Active Substance: CLOBAZAM
     Dosage: FRISIUM (CLOBAZAM) 10MG HARD CAPSULE 2 DOSAGE UNIT TOTAL
     Route: 048
     Dates: start: 20160611, end: 20160611

REACTIONS (4)
  - Sinus tachycardia [Recovering/Resolving]
  - Accidental overdose [Unknown]
  - Psychomotor skills impaired [Recovering/Resolving]
  - Speech disorder [Recovering/Resolving]

NARRATIVE: CASE EVENT DATE: 20160611
